FAERS Safety Report 4873096-0 (Version None)
Quarter: 2006Q1

REPORT INFORMATION
  Report Type: 
  Country: None (occurrence: None)
  Receive Date: 20060104
  Receipt Date: 20060104
  Transmission Date: 20060701
  Serious: Yes (Life-Threatening)
  Sender: FDA-Public Use
  Company Number: None

PATIENT
  Age: 48 Year
  Sex: Male
  Weight: 103 kg

DRUGS (2)
  1. ALPRAZOLAM [Suspect]
  2. METHADONE [Suspect]

REACTIONS (2)
  - ANOXIC ENCEPHALOPATHY [None]
  - OVERDOSE [None]
